FAERS Safety Report 9291983 (Version 3)
Quarter: 2013Q3

REPORT INFORMATION
  Report Type: Spontaneous
  Country: US (occurrence: US)
  Receive Date: 20130516
  Receipt Date: 20130805
  Transmission Date: 20140515
  Serious: No
  Sender: FDA-Public Use
  Company Number: US-PFIZER INC-2013148026

PATIENT
  Age: 75 Year
  Sex: Female

DRUGS (8)
  1. XALKORI [Suspect]
     Indication: LUNG ADENOCARCINOMA METASTATIC
     Dosage: 250 MG, 2X/DAY
     Route: 048
     Dates: start: 20111116, end: 20120218
  2. XALKORI [Suspect]
     Dosage: 200 MG, 2X/DAY
     Route: 048
     Dates: start: 20120218
  3. DIOVAN HCT [Concomitant]
     Dosage: 160-12.5 MG  (TABLET), 1X/DAY
     Route: 048
  4. PRILOSEC [Concomitant]
     Dosage: 20 MG, 1X/DAY
     Route: 048
  5. PROMETHAZINE HYDROCHLORIDE [Concomitant]
     Indication: NAUSEA
     Dosage: 12.5 MG, EVERY 6 HOURS, AS NEEDED
  6. PROMETHAZINE HYDROCHLORIDE [Concomitant]
     Dosage: 25 MG, EVERY 6 HOURS, AS NEEDED
  7. QUESTRAN [Concomitant]
     Dosage: 4 G, 1X/DAY
     Route: 048
  8. TOPROL XL [Concomitant]
     Dosage: 200 MG, 1X/DAY
     Route: 048

REACTIONS (2)
  - Visual impairment [Not Recovered/Not Resolved]
  - Cataract [Not Recovered/Not Resolved]
